FAERS Safety Report 6073850-6 (Version None)
Quarter: 2009Q1

REPORT INFORMATION
  Report Type: 
  Country: None (occurrence: None)
  Receive Date: 20090209
  Receipt Date: 20090209
  Transmission Date: 20090719
  Serious: Yes (Other)
  Sender: FDA-Public Use
  Company Number: None

PATIENT
  Age: 43 Year
  Sex: Female
  Weight: 116.1208 kg

DRUGS (2)
  1. PRILOSEC OTC [Suspect]
     Indication: GASTROOESOPHAGEAL REFLUX DISEASE
     Dosage: 40 MG DAILY PO
     Route: 048
     Dates: start: 20080205, end: 20080222
  2. PRILOSEC OTC [Suspect]
     Indication: REGURGITATION
     Dosage: 40 MG DAILY PO
     Route: 048
     Dates: start: 20080205, end: 20080222

REACTIONS (3)
  - CONFUSIONAL STATE [None]
  - DYSPNOEA [None]
  - HYPERHIDROSIS [None]
